FAERS Safety Report 13978740 (Version 2)
Quarter: 2017Q4

REPORT INFORMATION
  Report Type: Spontaneous
  Country: US (occurrence: US)
  Receive Date: 20170914
  Receipt Date: 20171019
  Transmission Date: 20180321
  Serious: Yes (Hospitalization)
  Sender: FDA-Public Use
  Company Number: US-ASTELLAS-2017US034423

PATIENT
  Sex: Male

DRUGS (1)
  1. XTANDI [Suspect]
     Active Substance: ENZALUTAMIDE
     Indication: PRODUCT USED FOR UNKNOWN INDICATION
     Route: 065
     Dates: start: 20170810, end: 20171005

REACTIONS (6)
  - Abdominal discomfort [Unknown]
  - Dysgeusia [Unknown]
  - Pleural effusion [Unknown]
  - Peripheral swelling [Recovered/Resolved]
  - Dyspnoea [Unknown]
  - Gastrointestinal sounds abnormal [Unknown]
